FAERS Safety Report 6626605-5 (Version None)
Quarter: 2010Q1

REPORT INFORMATION
  Report Type: 
  Country: None (occurrence: None)
  Receive Date: 20100309
  Receipt Date: 20100309
  Transmission Date: 20100710
  Serious: Yes (Life-Threatening, Hospitalization)
  Sender: FDA-Public Use
  Company Number: None

PATIENT
  Age: 50 Year
  Sex: Male
  Weight: 78.6 kg

DRUGS (1)
  1. JANUMET [Suspect]
     Indication: DIABETES MELLITUS
     Dosage: 1 TABLET TWICE DAILY PO
     Route: 048

REACTIONS (6)
  - ACIDOSIS [None]
  - ASCITES [None]
  - BLOOD POTASSIUM DECREASED [None]
  - MULTI-ORGAN FAILURE [None]
  - PANCREATITIS [None]
  - RENAL FAILURE ACUTE [None]
